FAERS Safety Report 12552456 (Version 1)
Quarter: 2016Q3

REPORT INFORMATION
  Report Type: Spontaneous
  Country: US (occurrence: US)
  Receive Date: 20160713
  Receipt Date: 20160713
  Transmission Date: 20161109
  Serious: Yes (Other)
  Sender: FDA-Public Use
  Company Number: US-IPCA LABORATORIES LIMITED-IPC201607-000566

PATIENT
  Age: 72 Year
  Sex: Female

DRUGS (3)
  1. HYDROCHLOROTHIAZIDE. [Suspect]
     Active Substance: HYDROCHLOROTHIAZIDE
     Indication: HYPERTENSION
  2. POTASSIUM SUPPLEMENTS [Concomitant]
     Route: 048
  3. POTASSIUM SUPPLEMENTS [Concomitant]

REACTIONS (2)
  - Potassium wasting nephropathy [Recovering/Resolving]
  - Nephrogenic diabetes insipidus [Recovering/Resolving]
